FAERS Safety Report 4290231-6 (Version None)
Quarter: 2004Q1

REPORT INFORMATION
  Report Type: 
  Country: None (occurrence: None)
  Receive Date: 20040209
  Receipt Date: 20040126
  Transmission Date: 20041129
  Serious: Yes (Disabling)
  Sender: FDA-Public Use
  Company Number: 2004006509

PATIENT
  Age: 32 Year
  Sex: Male
  Weight: 86.1834 kg

DRUGS (1)
  1. LIPITOR [Suspect]
     Indication: HYPERCHOLESTEROLAEMIA
     Dosage: (DAILY),ORAL
     Route: 048
     Dates: start: 20030101, end: 20031201

REACTIONS (3)
  - ASTHENIA [None]
  - MYOPATHY [None]
  - PAIN IN EXTREMITY [None]
